FAERS Safety Report 14412578 (Version 2)
Quarter: 2018Q1

REPORT INFORMATION
  Report Type: Spontaneous
  Country: US (occurrence: US)
  Receive Date: 20180119
  Receipt Date: 20180131
  Transmission Date: 20180509
  Serious: Yes (Other)
  Sender: FDA-Public Use
  Company Number: US-SAOL THERAPEUTICS-2018SAO00054

PATIENT
  Age: 35 Year
  Sex: Male
  Weight: 82.54 kg

DRUGS (5)
  1. LYRICA [Concomitant]
     Active Substance: PREGABALIN
  2. SUVOREXANT. [Concomitant]
     Active Substance: SUVOREXANT
  3. CYMBALTA [Concomitant]
     Active Substance: DULOXETINE HYDROCHLORIDE
  4. RESTORIL [Concomitant]
     Active Substance: TEMAZEPAM
  5. GABLOFEN [Suspect]
     Active Substance: BACLOFEN
     Dosage: 144 ?G, \DAY
     Route: 037
     Dates: start: 20121211

REACTIONS (2)
  - Decubitus ulcer [Unknown]
  - Osteomyelitis [Unknown]

NARRATIVE: CASE EVENT DATE: 201712
